FAERS Safety Report 4356337-8 (Version None)
Quarter: 2004Q2

REPORT INFORMATION
  Report Type: 
  Country: None (occurrence: None)
  Receive Date: 20040506
  Receipt Date: 20040427
  Transmission Date: 20050107
  Serious: Yes (Hospitalization)
  Sender: FDA-Public Use
  Company Number: 200411793BWH

PATIENT
  Age: 65 Year
  Sex: Male
  Weight: 82.5547 kg

DRUGS (10)
  1. LEVITRA [Suspect]
     Indication: ORGANIC ERECTILE DYSFUNCTION
     Dosage: SEE IMAGE
     Route: 048
     Dates: start: 20031109
  2. LEVITRA [Suspect]
     Indication: ORGANIC ERECTILE DYSFUNCTION
     Dosage: SEE IMAGE
     Route: 048
     Dates: start: 20031122
  3. LEVITRA [Suspect]
     Indication: ORGANIC ERECTILE DYSFUNCTION
     Dosage: SEE IMAGE
     Route: 048
     Dates: start: 20031129
  4. LEVITRA [Suspect]
     Indication: ORGANIC ERECTILE DYSFUNCTION
     Dosage: SEE IMAGE
     Route: 048
     Dates: start: 20031206
  5. LEVITRA [Suspect]
     Indication: ORGANIC ERECTILE DYSFUNCTION
     Dosage: SEE IMAGE
     Route: 048
     Dates: start: 20031214
  6. LEVITRA [Suspect]
     Indication: ORGANIC ERECTILE DYSFUNCTION
     Dosage: SEE IMAGE
     Route: 048
     Dates: start: 20031228
  7. LEVITRA [Suspect]
     Indication: ORGANIC ERECTILE DYSFUNCTION
     Dosage: SEE IMAGE
     Route: 048
     Dates: start: 20040111
  8. LEVITRA [Suspect]
     Indication: ORGANIC ERECTILE DYSFUNCTION
     Dosage: SEE IMAGE
     Route: 048
     Dates: start: 20040117
  9. ATENOLOL [Concomitant]
  10. SILDENAFL [Concomitant]

REACTIONS (5)
  - CARDIAC ARREST [None]
  - CAROTID ARTERY STENOSIS [None]
  - HYPERTENSION [None]
  - SICK SINUS SYNDROME [None]
  - SYNCOPE [None]
